FAERS Safety Report 10305357 (Version 1)
Quarter: 2014Q3

REPORT INFORMATION
  Report Type: Spontaneous
  Country: US (occurrence: None)
  Receive Date: 20140711
  Receipt Date: 20140711
  Transmission Date: 20150326
  Serious: Yes (Other)
  Sender: FDA-Public Use
  Company Number: None

PATIENT
  Age: 73 Year
  Sex: Male

DRUGS (1)
  1. LEVITRA [Suspect]
     Active Substance: VARDENAFIL HYDROCHLORIDE TRIHYDRATE
     Indication: ERECTILE DYSFUNCTION
     Dosage: 1/2 TAB 1 HOUR BEFORE SEX SUBLINGUAL
     Route: 060
     Dates: start: 20140701

REACTIONS (3)
  - Migraine with aura [None]
  - Visual field defect [None]
  - Photopsia [None]

NARRATIVE: CASE EVENT DATE: 20140701
